FAERS Safety Report 12923385 (Version 2)
Quarter: 2017Q1

REPORT INFORMATION
  Report Type: Spontaneous
  Country: US (occurrence: US)
  Receive Date: 20161109
  Receipt Date: 20170202
  Transmission Date: 20170428
  Serious: No
  Sender: FDA-Public Use
  Company Number: US-ASTRAZENECA-2016SF15102

PATIENT
  Age: 869 Month
  Sex: Male
  Weight: 95.3 kg

DRUGS (2)
  1. TUDORZA PRESSAIR [Suspect]
     Active Substance: ACLIDINIUM BROMIDE
     Indication: CHRONIC OBSTRUCTIVE PULMONARY DISEASE
     Dosage: 400 MCG, 1 PUFF IN THE MORNING AND 1 PUFF IN THE EVENING STARTED 2 TO 3 YEARS AGO
     Route: 055
     Dates: end: 201606
  2. TUDORZA PRESSAIR [Suspect]
     Active Substance: ACLIDINIUM BROMIDE
     Indication: ASTHMA
     Dosage: 400 MCG, 1 PUFF IN THE MORNING AND 1 PUFF IN THE EVENING STARTED 2 TO 3 YEARS AGO
     Route: 055
     Dates: end: 201606

REACTIONS (7)
  - Productive cough [Not Recovered/Not Resolved]
  - Product use issue [Unknown]
  - Off label use [Unknown]
  - Therapy cessation [Not Recovered/Not Resolved]
  - Drug dose omission [Unknown]
  - Device malfunction [Unknown]
  - Device use issue [Unknown]

NARRATIVE: CASE EVENT DATE: 201610
